FAERS Safety Report 12482670 (Version 1)
Quarter: 2016Q2

REPORT INFORMATION
  Report Type: Spontaneous
  Country: US (occurrence: US)
  Receive Date: 20160620
  Receipt Date: 20160620
  Transmission Date: 20160815
  Serious: No
  Sender: FDA-Public Use
  Company Number: GXBR2016US001951

PATIENT
  Sex: Female

DRUGS (1)
  1. GLATOPA [Suspect]
     Active Substance: GLATIRAMER ACETATE
     Indication: MULTIPLE SCLEROSIS
     Dosage: 20 MG, UNK
     Route: 065
     Dates: start: 201510

REACTIONS (8)
  - Cognitive disorder [Recovering/Resolving]
  - Drug ineffective [Unknown]
  - Fall [Recovering/Resolving]
  - Fine motor skill dysfunction [Recovering/Resolving]
  - Multiple sclerosis [Recovering/Resolving]
  - Balance disorder [Recovering/Resolving]
  - Coordination abnormal [Recovering/Resolving]
  - Gait disturbance [Recovering/Resolving]
